FAERS Safety Report 16338701 (Version 2)
Quarter: 2019Q2

REPORT INFORMATION
  Report Type: Spontaneous
  Country: BR (occurrence: BR)
  Receive Date: 20190521
  Receipt Date: 20190521
  Transmission Date: 20190711
  Serious: Yes (Death, Hospitalization, Other)
  Sender: FDA-Public Use
  Company Number: BR-SERVIER-S19004422

PATIENT

DRUGS (2)
  1. ONCASPAR [Suspect]
     Active Substance: PEGASPARGASE
     Indication: PRODUCT USED FOR UNKNOWN INDICATION
     Dosage: 2500 UIM2
     Route: 030
  2. TN UNSPECIFIED [VINCRISTINE SULFATE] [Concomitant]
     Active Substance: VINCRISTINE SULFATE
     Indication: PRODUCT USED FOR UNKNOWN INDICATION
     Dosage: UNK
     Route: 065

REACTIONS (8)
  - Bacterial infection [Fatal]
  - Blood bilirubin increased [Recovering/Resolving]
  - Hypoalbuminaemia [Unknown]
  - Blood sodium decreased [Unknown]
  - Transaminases increased [Recovering/Resolving]
  - Constipation [Recovered/Resolved]
  - Septic shock [Fatal]
  - Venoocclusive disease [Unknown]

NARRATIVE: CASE EVENT DATE: 2019
